FAERS Safety Report 13639063 (Version 6)
Quarter: 2017Q4

REPORT INFORMATION
  Report Type: Spontaneous
  Country: CN (occurrence: CN)
  Receive Date: 20170609
  Receipt Date: 20171214
  Transmission Date: 20180320
  Serious: Yes (Other)
  Sender: FDA-Public Use
  Company Number: CN-ABBVIE-17P-035-2003179-00

PATIENT
  Age: 5 Year
  Sex: Male

DRUGS (4)
  1. DEPAKINE CHRONO [Suspect]
     Active Substance: VALPROATE SODIUM
     Indication: EPILEPSY
     Dosage: EXTENDED RELEASE
     Route: 048
     Dates: start: 201702
  2. DEPAKINE [Suspect]
     Active Substance: VALPROATE SODIUM
     Route: 048
  3. DEPAKINE [Suspect]
     Active Substance: VALPROATE SODIUM
     Indication: EPILEPSY
     Route: 048
     Dates: start: 201612
  4. DEPAKINE [Suspect]
     Active Substance: VALPROATE SODIUM
     Route: 048
     Dates: start: 20170601

REACTIONS (9)
  - Strabismus [Recovered/Resolved]
  - Tic [Recovered/Resolved]
  - Generalised tonic-clonic seizure [Recovered/Resolved]
  - Petit mal epilepsy [Recovered/Resolved]
  - Drug level decreased [Recovered/Resolved]
  - Crying [Unknown]
  - Loss of consciousness [Unknown]
  - Decreased appetite [Not Recovered/Not Resolved]
  - Drooling [Recovered/Resolved]

NARRATIVE: CASE EVENT DATE: 2017
